FAERS Safety Report 17860572 (Version 3)
Quarter: 2020Q3

REPORT INFORMATION
  Report Type: Report from Study
  Country: US (occurrence: US)
  Receive Date: 20200604
  Receipt Date: 20200710
  Transmission Date: 20201103
  Serious: No
  Sender: FDA-Public Use
  Company Number: US-SA-2020SA143181

PATIENT

DRUGS (4)
  1. DUPILUMAB [Suspect]
     Active Substance: DUPILUMAB
     Indication: ASTHMA
  2. SINGULAIR [Concomitant]
     Active Substance: MONTELUKAST SODIUM
  3. VERAMYST [Concomitant]
     Active Substance: FLUTICASONE FUROATE
  4. FLONASE SENSIMIST ALLERGY RELIEF [Concomitant]
     Active Substance: FLUTICASONE FUROATE

REACTIONS (10)
  - Middle insomnia [Unknown]
  - Nasal pruritus [Unknown]
  - Dyspnoea [Unknown]
  - Rhinorrhoea [Unknown]
  - Wheezing [Unknown]
  - Sleep disorder [Unknown]
  - Nasal congestion [Unknown]
  - Asthma [Unknown]
  - Chest discomfort [Unknown]
  - Sinus operation [Unknown]

NARRATIVE: CASE EVENT DATE: 202003
